FAERS Safety Report 10021943 (Version 1)
Quarter: 2014Q1

REPORT INFORMATION
  Report Type: Spontaneous
  Country: US (occurrence: None)
  Receive Date: 20140318
  Receipt Date: 20140318
  Transmission Date: 20141002
  Serious: No
  Sender: FDA-Public Use
  Company Number: None

PATIENT
  Age: 45 Year
  Sex: Male
  Weight: 61.69 kg

DRUGS (1)
  1. AMLEXANOX [Suspect]
     Indication: APHTHOUS STOMATITIS
     Dosage: APPLIED TO A SURFACE, USUALLY THE SKIN
     Route: 061
     Dates: start: 20131105, end: 20140227

REACTIONS (4)
  - Fatigue [None]
  - Nasopharyngitis [None]
  - Glossodynia [None]
  - Oral disorder [None]
